FAERS Safety Report 9268899 (Version 1)
Quarter: 2013Q2

REPORT INFORMATION
  Report Type: Spontaneous
  Country: US (occurrence: US)
  Receive Date: 20130503
  Receipt Date: 20130503
  Transmission Date: 20140414
  Serious: Yes (Hospitalization)
  Sender: FDA-Public Use
  Company Number: US-009507513-1305USA000585

PATIENT
  Sex: 0

DRUGS (3)
  1. ISENTRESS [Suspect]
     Dosage: UNK
     Route: 048
     Dates: end: 20130426
  2. DARUNAVIR [Concomitant]
  3. ETRAVIRINE [Concomitant]

REACTIONS (2)
  - Gastrointestinal tube insertion [Not Recovered/Not Resolved]
  - Stomatitis [Not Recovered/Not Resolved]
